FAERS Safety Report 8342814-1 (Version None)
Quarter: 2012Q1

REPORT INFORMATION
  Report Type: 
  Country: None (occurrence: None)
  Receive Date: 20120330
  Receipt Date: 20010521
  Transmission Date: 20120608
  Serious: Yes (Hospitalization)
  Sender: FDA-Public Use
  Company Number: PHEH2001US04467

PATIENT
  Age: 82 Year
  Sex: Female

DRUGS (7)
  1. EXELON [Suspect]
     Indication: DEMENTIA ALZHEIMER'S TYPE
     Dosage: 1.5 MG, BID, ORAL
     Route: 048
     Dates: start: 20010320
  2. ATENOLOL [Concomitant]
  3. ISOSORBIDE (ISOSORBIDE) [Concomitant]
  4. DOXEPIN HCL [Concomitant]
  5. PAXIL [Concomitant]
  6. LASIX [Concomitant]
  7. LANOXIN [Concomitant]

REACTIONS (3)
  - SYNCOPE [None]
  - ANAEMIA [None]
  - ASTHENIA [None]
